FAERS Safety Report 8531189-0 (Version None)
Quarter: 2012Q3

REPORT INFORMATION
  Report Type: 
  Country: None (occurrence: None)
  Receive Date: 20120723
  Receipt Date: 20120711
  Transmission Date: 20120928
  Serious: Yes (Hospitalization, Other)
  Sender: FDA-Public Use
  Company Number: US-ELI_LILLY_AND_COMPANY-US201207003904

PATIENT
  Age: 57 Year
  Sex: Male

DRUGS (4)
  1. HUMULIN R [Suspect]
     Indication: DIABETES MELLITUS
     Dosage: UNK
     Dates: start: 20090101
  2. METFORMIN HYDROCHLORIDE [Concomitant]
     Dosage: 100 MG, BID
  3. LANTUS [Concomitant]
  4. BYETTA [Concomitant]

REACTIONS (8)
  - ATRIAL FIBRILLATION [None]
  - HEART RATE INCREASED [None]
  - NEUROPATHY PERIPHERAL [None]
  - CARPAL TUNNEL SYNDROME [None]
  - DYSPNOEA [None]
  - CARDIAC DISORDER [None]
  - HYPOTHYROIDISM [None]
  - HYPOAESTHESIA [None]
